FAERS Safety Report 19984514 (Version 2)
Quarter: 2021Q4

REPORT INFORMATION
  Report Type: Report from Study
  Country: JP (occurrence: JP)
  Receive Date: 20211022
  Receipt Date: 20211109
  Transmission Date: 20220303
  Serious: Yes (Life-Threatening, Hospitalization, Other)
  Sender: FDA-Public Use
  Company Number: JP-ONO-2021JP020796

PATIENT
  Age: 59 Year
  Sex: Female

DRUGS (2)
  1. CARFILZOMIB [Suspect]
     Active Substance: CARFILZOMIB
     Indication: Plasma cell myeloma
     Dosage: 20 MG/M2
     Route: 041
     Dates: start: 20200716, end: 20200716
  2. DEXAMETHASONE [Concomitant]
     Active Substance: DEXAMETHASONE
     Indication: Plasma cell myeloma
     Dosage: 4 MG
     Route: 065
     Dates: start: 20200716, end: 20200716

REACTIONS (3)
  - Cardiac arrest [Recovered/Resolved]
  - Gastrointestinal amyloidosis [Not Recovered/Not Resolved]
  - Pleural effusion [Not Recovered/Not Resolved]

NARRATIVE: CASE EVENT DATE: 20200719
